FAERS Safety Report 14033660 (Version 1)
Quarter: 2017Q4

REPORT INFORMATION
  Report Type: Spontaneous
  Country: US (occurrence: US)
  Receive Date: 20171003
  Receipt Date: 20171003
  Transmission Date: 20180321
  Serious: No
  Sender: FDA-Public Use
  Company Number: US-JNJFOC-20040404114

PATIENT
  Age: 51 Year
  Sex: Female

DRUGS (8)
  1. MELATONIN [Concomitant]
     Active Substance: MELATONIN
     Indication: BLADDER PAIN
     Route: 065
  2. AMITRIPTYLIN [Concomitant]
     Active Substance: AMITRIPTYLINE
     Route: 065
  3. URISED [Concomitant]
     Active Substance: ATROPINE\BENZOIC ACID\GELSEMIUM SEMPERVIRENS ROOT\HYOSCYAMINE\METHENAMINE\METHYLENE BLUE ANHYDROUS\PHENYL SALICYLATE
     Indication: BLADDER PAIN
     Dosage: TAKEN AS NEEDED
     Route: 065
     Dates: start: 1996
  4. FUROSEMIDE. [Concomitant]
     Active Substance: FUROSEMIDE
     Route: 065
  5. VERAPAMIL [Concomitant]
     Active Substance: VERAPAMIL HYDROCHLORIDE
     Route: 065
  6. LISINOPRIL. [Concomitant]
     Active Substance: LISINOPRIL
     Indication: HYPERTENSION
     Dates: start: 1996
  7. PREMPRO [Concomitant]
     Active Substance: ESTROGENS, CONJUGATED\MEDROXYPROGESTERONE ACETATE
     Dates: start: 20040214
  8. ELMIRON [Suspect]
     Active Substance: PENTOSAN POLYSULFATE SODIUM
     Indication: CYSTITIS INTERSTITIAL
     Route: 048
     Dates: start: 199605

REACTIONS (1)
  - Cystitis interstitial [Recovered/Resolved]

NARRATIVE: CASE EVENT DATE: 20040412
